FAERS Safety Report 22930306 (Version 8)
Quarter: 2025Q4

REPORT INFORMATION
  Report Type: Report from Study
  Country: CA (occurrence: CA)
  Receive Date: 20230911
  Receipt Date: 20251231
  Transmission Date: 20260118
  Serious: Yes (Other)
  Sender: SANDOZ
  Company Number: CA-002147023-NVSC2022CA077914

PATIENT
  Age: 30 Year
  Sex: Male

DRUGS (5)
  1. HYRIMOZ [Suspect]
     Active Substance: ADALIMUMAB-ADAZ
     Indication: Crohn^s disease
     Dosage: 40 MG (END OF WEEK), 40 MG/0.8 ML, PREFILLED PEN
  2. HYRIMOZ [Suspect]
     Active Substance: ADALIMUMAB-ADAZ
     Dosage: 40 MG
  3. HYRIMOZ [Suspect]
     Active Substance: ADALIMUMAB-ADAZ
     Dosage: 40 MG
  4. HYRIMOZ [Suspect]
     Active Substance: ADALIMUMAB-ADAZ
     Dosage: 40 MG, Q2W, STRENGTH: 40 MG. PRE-FILLED PEN
  5. HYRIMOZ [Suspect]
     Active Substance: ADALIMUMAB-ADAZ
     Dosage: 160 MG

REACTIONS (24)
  - Crohn^s disease [Unknown]
  - Pyoderma gangrenosum [Unknown]
  - Skin haemorrhage [Unknown]
  - Skin lesion [Unknown]
  - Scab [Unknown]
  - Pruritus [Unknown]
  - Erythema [Unknown]
  - Rash macular [Unknown]
  - Pain of skin [Unknown]
  - Epistaxis [Recovered/Resolved]
  - Scar [Recovered/Resolved]
  - Pain [Unknown]
  - Myalgia [Unknown]
  - Blister [Unknown]
  - Eating disorder [Unknown]
  - Acne [Unknown]
  - Malaise [Not Recovered/Not Resolved]
  - Diarrhoea [Recovering/Resolving]
  - Abdominal pain [Recovered/Resolved]
  - Skin infection [Unknown]
  - Injection site discomfort [Unknown]
  - Product dose omission issue [Unknown]
  - Inappropriate schedule of product administration [Unknown]
  - Product use issue [Unknown]

NARRATIVE: CASE EVENT DATE: 20220328
